FAERS Safety Report 8523558-X (Version None)
Quarter: 2012Q3

REPORT INFORMATION
  Report Type: 
  Country: None (occurrence: None)
  Receive Date: 20120720
  Receipt Date: 20120710
  Transmission Date: 20120928
  Serious: Yes (Hospitalization, Other)
  Sender: FDA-Public Use
  Company Number: US-UCBSA-054031

PATIENT
  Age: 50 Year
  Sex: Male
  Weight: 95.2 kg

DRUGS (15)
  1. SOTALOLHCI [Concomitant]
     Route: 048
     Dates: start: 20120320
  2. LISINOPRIL AND HYDROCHLOROTHIAZIDE [Concomitant]
     Indication: BLOOD PRESSURE
     Dosage: 20/12.5 MG ONE TABLET DAILY
     Route: 048
     Dates: start: 20070101
  3. FOLIC ACID [Concomitant]
     Route: 048
  4. CIMZIA [Suspect]
     Route: 058
     Dates: start: 20120101
  5. PROZAC [Concomitant]
     Route: 048
     Dates: start: 20120501
  6. XANAX [Concomitant]
     Route: 048
     Dates: start: 20120320
  7. ASPIRIN [Concomitant]
     Route: 048
     Dates: start: 20120320
  8. CIMZIA [Suspect]
     Indication: RHEUMATOID ARTHRITIS
     Route: 058
     Dates: start: 20111202
  9. PREDNISONE [Concomitant]
     Route: 048
     Dates: start: 20120320
  10. CARDIZEM [Concomitant]
     Route: 048
     Dates: start: 20120320
  11. ZOCOR [Concomitant]
     Dosage: AT BEDTIME
     Route: 048
     Dates: start: 20120320
  12. PROZAC [Concomitant]
     Route: 048
     Dates: start: 20070101, end: 20120101
  13. LISINOPRIL [Concomitant]
     Dosage: ONE AT BEDTIME
     Route: 048
     Dates: start: 20120320
  14. METHOTREXATE [Concomitant]
     Indication: RHEUMATOID ARTHRITIS
     Route: 030
  15. PEPCID [Concomitant]
     Route: 048
     Dates: start: 20120320

REACTIONS (8)
  - FATIGUE [None]
  - ATRIAL FIBRILLATION [None]
  - MALAISE [None]
  - CORONARY ARTERY OCCLUSION [None]
  - DIZZINESS [None]
  - VOMITING [None]
  - NAUSEA [None]
  - ABDOMINAL DISCOMFORT [None]
